FAERS Safety Report 18694390 (Version 2)
Quarter: 2021Q1

REPORT INFORMATION
  Report Type: Spontaneous
  Country: US (occurrence: US)
  Receive Date: 20210104
  Receipt Date: 20210108
  Transmission Date: 20210419
  Serious: Yes (Other)
  Sender: FDA-Public Use
  Company Number: US-PFIZER INC-2020516132

PATIENT
  Age: 77 Year
  Sex: Male

DRUGS (1)
  1. CIPROFLOXACIN. [Suspect]
     Active Substance: CIPROFLOXACIN
     Indication: INFECTION PROPHYLAXIS
     Dosage: 250 MG, DAILY (CHRONIC DOSE)

REACTIONS (2)
  - Hyperinsulinaemia [Recovered/Resolved]
  - Hyperinsulinaemic hypoglycaemia [Recovered/Resolved]
